FAERS Safety Report 7584946-1 (Version None)
Quarter: 2011Q2

REPORT INFORMATION
  Report Type: 
  Country: None (occurrence: None)
  Receive Date: 20110630
  Receipt Date: 20110615
  Transmission Date: 20111010
  Serious: Yes (Other)
  Sender: FDA-Public Use
  Company Number: US-BAYER-2011-052766

PATIENT
  Age: 67 Year
  Sex: Female

DRUGS (9)
  1. PLAVIX [Suspect]
     Dosage: 75 MG, QD
     Route: 048
     Dates: start: 20110606
  2. NEXIUM [Concomitant]
  3. COUMADIN [Suspect]
  4. PREDNISONE [Concomitant]
  5. ANTACIDS [Concomitant]
  6. PLAVIX [Suspect]
     Indication: ISCHAEMIC STROKE
     Dosage: 75 MG, QD
     Route: 048
     Dates: start: 20110301, end: 20110531
  7. ASPIRIN [Suspect]
     Dosage: UNK UNK, QD
  8. LOVENOX [Concomitant]
     Dosage: UNK
     Dates: start: 20110603
  9. LOVENOX [Concomitant]

REACTIONS (3)
  - GASTRITIS [None]
  - GASTROINTESTINAL HAEMORRHAGE [None]
  - GASTROINTESTINAL INFLAMMATION [None]
